FAERS Safety Report 5429314-3 (Version None)
Quarter: 2007Q3

REPORT INFORMATION
  Report Type: 
  Country: None (occurrence: None)
  Receive Date: 20070829
  Receipt Date: 20070822
  Transmission Date: 20080115
  Serious: Yes (Hospitalization, Other)
  Sender: FDA-Public Use
  Company Number: PHBS2007JP14087

PATIENT
  Age: 62 Year
  Sex: Female
  Weight: 80 kg

DRUGS (7)
  1. TEGRETOL [Suspect]
     Dosage: 1400 MG/DAY
     Route: 048
     Dates: start: 20020607, end: 20020607
  2. HALOPERIDOL [Concomitant]
     Dosage: 189 MG/DAY
     Route: 048
     Dates: start: 20020607, end: 20020607
  3. ETIZOLAM [Concomitant]
     Dosage: 21 MG/DAY
     Route: 048
     Dates: start: 20020607, end: 20020607
  4. BIPERIDEN HYDROCHLORIDE TAB [Concomitant]
     Dosage: 84 MG/DAY
     Route: 048
     Dates: start: 20020607, end: 20020607
  5. PEROSPIRONE HYDROCHLORIDE [Concomitant]
     Dosage: 672 MG/DAY
     Route: 048
     Dates: start: 20020607, end: 20020607
  6. LEVOMEPROMAZINE MALEATE [Concomitant]
     Dosage: 350 MG/DAY
     Route: 048
     Dates: start: 20020607, end: 20020607
  7. FLUNITRAZEPAM [Concomitant]
     Dosage: 21 MG/DAY
     Route: 048
     Dates: start: 20020607, end: 20020607

REACTIONS (7)
  - ALTERED STATE OF CONSCIOUSNESS [None]
  - HYPOTENSION [None]
  - INTENTIONAL OVERDOSE [None]
  - NEUROLEPTIC MALIGNANT SYNDROME [None]
  - PNEUMONIA ASPIRATION [None]
  - RESPIRATORY DISORDER [None]
  - SUICIDE ATTEMPT [None]
